FAERS Safety Report 6241895-9 (Version None)
Quarter: 2009Q2

REPORT INFORMATION
  Report Type: 
  Country: None (occurrence: None)
  Receive Date: 20090623
  Receipt Date: 20090611
  Transmission Date: 20091009
  Serious: Yes (Other)
  Sender: FDA-Public Use
  Company Number: JP-PFIZER INC-2009220668

PATIENT
  Age: 4 Year

DRUGS (7)
  1. GABAPEN [Suspect]
     Dosage: UNK
     Dates: start: 20080701, end: 20081017
  2. PHENYTOIN AND PHENYTOIN SODIUM [Suspect]
     Dosage: UNK
     Dates: start: 20081001
  3. CARBAMAZEPINE [Suspect]
     Dosage: UNK
  4. VALPROIC ACID [Suspect]
     Dosage: UNK
  5. ZONISAMIDE [Suspect]
     Dosage: UNK
  6. CLOBAZAM [Suspect]
     Dosage: UNK
  7. RISPERDAL [Concomitant]
     Route: 048

REACTIONS (1)
  - TOXIC EPIDERMAL NECROLYSIS [None]
